FAERS Safety Report 5346011-3 (Version None)
Quarter: 2007Q2

REPORT INFORMATION
  Report Type: 
  Country: None (occurrence: None)
  Receive Date: 20070605
  Receipt Date: 20070526
  Transmission Date: 20071010
  Serious: Yes (Hospitalization)
  Sender: FDA-Public Use
  Company Number: JP-ELI_LILLY_AND_COMPANY-JP200706000004

PATIENT
  Age: 81 Year
  Sex: Male

DRUGS (1)
  1. HUMACART NPH [Suspect]
     Dosage: UNK, UNK
     Route: 058

REACTIONS (1)
  - ASTHENIA [None]
